FAERS Safety Report 8212936-4 (Version None)
Quarter: 2012Q1

REPORT INFORMATION
  Report Type: 
  Country: None (occurrence: None)
  Receive Date: 20120315
  Receipt Date: 20120308
  Transmission Date: 20120608
  Serious: Yes (Hospitalization)
  Sender: FDA-Public Use
  Company Number: JP-EISAI INC-E2090-02027-SPO-JP

PATIENT
  Age: 44 Year
  Sex: Male

DRUGS (3)
  1. VALPROIC ACID [Suspect]
     Indication: EPILEPSY
     Dosage: UNKNOWN
     Route: 048
  2. VALPROIC ACID [Suspect]
     Dosage: INCREASED TO THERAPEUTIC RANGE
     Route: 048
  3. ZONISAMIDE [Suspect]
     Indication: EPILEPSY
     Dosage: UNKNOWN
     Route: 048

REACTIONS (2)
  - DRUG ERUPTION [None]
  - LOSS OF CONSCIOUSNESS [None]
